FAERS Safety Report 9933330 (Version 2)
Quarter: 2014Q1

REPORT INFORMATION
  Report Type: Report from Study
  Country: US (occurrence: US)
  Receive Date: 20140228
  Receipt Date: 20140228
  Transmission Date: 20141002
  Serious: No
  Sender: FDA-Public Use
  Company Number: US-MYLANLABS-2013S1005433

PATIENT
  Age: 30 Year
  Sex: Female
  Weight: 74.39 kg

DRUGS (3)
  1. AMNESTEEM CAPSULES [Suspect]
     Indication: ACNE
     Route: 048
     Dates: start: 20121031, end: 20130218
  2. CLARAVIS [Suspect]
  3. MULTIPLE VITAMINS [Concomitant]

REACTIONS (2)
  - Depressed mood [Recovered/Resolved]
  - Crying [Recovered/Resolved]
